FAERS Safety Report 7364363-X (Version None)
Quarter: 2011Q1

REPORT INFORMATION
  Report Type: 
  Country: None (occurrence: None)
  Receive Date: 20110321
  Receipt Date: 20110315
  Transmission Date: 20110831
  Serious: Yes (Hospitalization)
  Sender: FDA-Public Use
  Company Number: IT-ABBOTT-11P-083-0711462-00

PATIENT
  Sex: Male

DRUGS (2)
  1. KLACID GRANULES [Suspect]
     Indication: PHARYNGOTONSILLITIS
     Dates: start: 20101209, end: 20101210
  2. NUROFEN DOLORE E FEBBRE [Suspect]
     Indication: PYREXIA
     Route: 048
     Dates: start: 20101209, end: 20101210

REACTIONS (2)
  - URTICARIA [None]
  - ANGIOEDEMA [None]
